FAERS Safety Report 13941026 (Version 2)
Quarter: 2017Q3

REPORT INFORMATION
  Report Type: Report from Study
  Country: US (occurrence: US)
  Receive Date: 20170906
  Receipt Date: 20170908
  Transmission Date: 20171127
  Serious: Yes (Other)
  Sender: FDA-Public Use
  Company Number: US-AMGEN-USASL2017134106

PATIENT
  Age: 64 Year
  Sex: Female

DRUGS (1)
  1. ENBREL [Suspect]
     Active Substance: ETANERCEPT
     Indication: ANKYLOSING SPONDYLITIS
     Dosage: UNK
     Route: 065

REACTIONS (10)
  - Foot operation [Unknown]
  - Rheumatoid arthritis [Unknown]
  - Bone disorder [Unknown]
  - Memory impairment [Unknown]
  - Myalgia [Unknown]
  - Gait disturbance [Unknown]
  - Unevaluable event [Unknown]
  - Fascial infection [Unknown]
  - Staphylococcal infection [Unknown]
  - Surgery [Unknown]

NARRATIVE: CASE EVENT DATE: 2016
